FAERS Safety Report 10021927 (Version 1)
Quarter: 2014Q1

REPORT INFORMATION
  Report Type: Spontaneous
  Country: IT (occurrence: IT)
  Receive Date: 20140319
  Receipt Date: 20140319
  Transmission Date: 20141002
  Serious: Yes (Life-Threatening)
  Sender: FDA-Public Use
  Company Number: IT-TEVA-468403ISR

PATIENT
  Age: 64 Year
  Sex: Male
  Weight: 55 kg

DRUGS (4)
  1. ETOPOSIDE TEVA [Suspect]
     Indication: LUNG NEOPLASM MALIGNANT
     Dosage: 80 MG/M2 DAILY;
     Route: 042
     Dates: start: 20140226, end: 20140226
  2. CISPLATINO HOSPIRA [Suspect]
     Indication: LUNG NEOPLASM MALIGNANT
     Dosage: 80 MG/M2 DAILY;
     Route: 042
     Dates: start: 20140226, end: 20140226
  3. ZANTAC [Concomitant]
     Indication: PREMEDICATION
     Route: 042
     Dates: start: 20140226, end: 20140226
  4. ALOXI [Concomitant]
     Indication: PROPHYLAXIS OF NAUSEA AND VOMITING
     Dosage: 1 DOSAGE FORMS DAILY;
     Route: 042
     Dates: start: 20140226, end: 20140226

REACTIONS (4)
  - Chest pain [Recovering/Resolving]
  - Confusional state [Recovering/Resolving]
  - Hypertension [Recovering/Resolving]
  - Syncope [Recovering/Resolving]
